FAERS Safety Report 7262288-1 (Version None)
Quarter: 2011Q1

REPORT INFORMATION
  Report Type: 
  Country: None (occurrence: None)
  Receive Date: 20110130
  Receipt Date: 20101116
  Transmission Date: 20110831
  Serious: No
  Sender: FDA-Public Use
  Company Number: US-ABBOTT-10P-163-0685639-00

PATIENT
  Sex: Male
  Weight: 89.438 kg

DRUGS (3)
  1. HUMIRA [Suspect]
     Indication: COLITIS ULCERATIVE
     Dosage: 160MG ONCE
     Dates: start: 20100930, end: 20100930
  2. HUMIRA [Suspect]
     Dosage: 80MG ONCE
     Dates: start: 20101014, end: 20101014
  3. HUMIRA [Suspect]
     Dosage: 80MG EVERY 2 WEEKS
     Dates: start: 20101028

REACTIONS (1)
  - INCORRECT DOSE ADMINISTERED [None]
